FAERS Safety Report 23674586 (Version 1)
Quarter: 2024Q1

REPORT INFORMATION
  Report Type: Spontaneous
  Country: AU (occurrence: AU)
  Receive Date: 20240326
  Receipt Date: 20240326
  Transmission Date: 20240409
  Serious: Yes (Hospitalization, Other)
  Sender: FDA-Public Use
  Company Number: AU-INSUD PHARMA-2403AU02455

PATIENT

DRUGS (9)
  1. NUVESSA [Suspect]
     Active Substance: METRONIDAZOLE
     Indication: Appendicitis perforated
     Dosage: UNK
     Route: 065
     Dates: start: 201705
  2. AMOXICILLIN [Suspect]
     Active Substance: AMOXICILLIN
     Indication: Appendicitis perforated
     Dosage: UNK
     Route: 065
     Dates: start: 201705
  3. GENTAMICIN [Suspect]
     Active Substance: GENTAMICIN
     Indication: Appendicitis perforated
     Dosage: UNK
     Route: 065
     Dates: start: 201705
  4. CEPHALEXIN [Suspect]
     Active Substance: CEPHALEXIN
     Indication: Appendicitis perforated
     Dosage: UNK
     Route: 065
     Dates: start: 201705
  5. CIPROFLOXACIN [Suspect]
     Active Substance: CIPROFLOXACIN
     Indication: Appendicitis perforated
     Dosage: UNK
     Route: 065
     Dates: start: 201705
  6. PREDNISOLONE [Concomitant]
     Active Substance: PREDNISOLONE
     Indication: Lupus nephritis
     Dosage: 7.5 MILLIGRAM
  7. AZATHIOPRINE [Concomitant]
     Active Substance: AZATHIOPRINE
     Indication: Lupus nephritis
     Dosage: 50 MILLIGRAM, QD
  8. HYDROXYCHLOROQUINE [Concomitant]
     Active Substance: HYDROXYCHLOROQUINE
     Indication: Lupus nephritis
     Dosage: 400 MILLIGRAM, QD
  9. PERINDOPRIL [Concomitant]
     Active Substance: PERINDOPRIL

REACTIONS (11)
  - Acute kidney injury [Unknown]
  - Renal tubular necrosis [Unknown]
  - Glomerulonephropathy [Unknown]
  - Peripheral swelling [Unknown]
  - Urine output decreased [Recovered/Resolved]
  - Tachycardia [Unknown]
  - Hypertension [Unknown]
  - Hypervolaemia [Unknown]
  - Hypoalbuminaemia [Unknown]
  - Hyperkalaemia [Unknown]
  - Metabolic acidosis [Unknown]

NARRATIVE: CASE EVENT DATE: 20170601
